FAERS Safety Report 7825619-7 (Version None)
Quarter: 2011Q4

REPORT INFORMATION
  Report Type: 
  Country: None (occurrence: None)
  Receive Date: 20111019
  Receipt Date: 20111012
  Transmission Date: 20120403
  Serious: Yes (Other)
  Sender: FDA-Public Use
  Company Number: PHHY2011JP90903

PATIENT
  Age: 42 Year
  Sex: Male

DRUGS (2)
  1. WHEAT [Interacting]
     Dosage: 100 G, UNK
  2. ASPIRIN [Suspect]
     Dosage: 500 MG, UNK

REACTIONS (4)
  - THROAT TIGHTNESS [None]
  - ANAPHYLACTIC REACTION [None]
  - URTICARIA [None]
  - DRUG INTERACTION [None]
